FAERS Safety Report 5911244-1 (Version None)
Quarter: 2008Q4

REPORT INFORMATION
  Report Type: 
  Country: None (occurrence: None)
  Receive Date: 20081007
  Receipt Date: 20080930
  Transmission Date: 20090506
  Serious: Yes (Other)
  Sender: FDA-Public Use
  Company Number: US-JNJCH-2008025411

PATIENT
  Age: 39 Year
  Sex: Female

DRUGS (1)
  1. ZYRTEC [Suspect]
     Indication: SEASONAL ALLERGY
     Dosage: TEXT:1 TABLET
     Route: 048
     Dates: start: 20080927, end: 20080928

REACTIONS (1)
  - RASH [None]
